FAERS Safety Report 7204719-9 (Version None)
Quarter: 2010Q4

REPORT INFORMATION
  Report Type: 
  Country: None (occurrence: None)
  Receive Date: 20101217
  Receipt Date: 20101202
  Transmission Date: 20110411
  Serious: Yes (Hospitalization)
  Sender: FDA-Public Use
  Company Number: 023155

PATIENT
  Sex: Female
  Weight: 69.8 kg

DRUGS (5)
  1. CIMZIA [Suspect]
     Indication: CROHN'S DISEASE
     Dosage: (SUBCUTANEOUS)
     Route: 058
     Dates: start: 20101020
  2. PREDNISONE [Concomitant]
  3. AZATHIOPRINE [Concomitant]
  4. DILAUDID [Concomitant]
  5. LOMOTIL /00034001/ [Concomitant]

REACTIONS (5)
  - CLOSTRIDIUM TEST POSITIVE [None]
  - CONDITION AGGRAVATED [None]
  - CROHN'S DISEASE [None]
  - NO THERAPEUTIC RESPONSE [None]
  - SMALL INTESTINAL OBSTRUCTION [None]
